FAERS Safety Report 11297821 (Version 1)
Quarter: 2015Q3

REPORT INFORMATION
  Report Type: Spontaneous
  Country: US (occurrence: US)
  Receive Date: 20150722
  Receipt Date: 20150722
  Transmission Date: 20151125
  Serious: No
  Sender: FDA-Public Use
  Company Number: US-ELI_LILLY_AND_COMPANY-US200912003485

PATIENT
  Sex: Female

DRUGS (3)
  1. HUMATROPE [Suspect]
     Active Substance: SOMATROPIN
     Indication: HYPOTHALAMO-PITUITARY DISORDER
     Dosage: 4 MG, DAILY (1/D)
     Dates: start: 2008, end: 200912
  2. HUMATROPE [Suspect]
     Active Substance: SOMATROPIN
     Dosage: UNK, DAILY (1/D)
     Dates: start: 200912, end: 200912
  3. HUMATROPE [Suspect]
     Active Substance: SOMATROPIN
     Dosage: 4 MG, DAILY (1/D)
     Dates: start: 200912

REACTIONS (9)
  - Blood glucose decreased [Not Recovered/Not Resolved]
  - Dizziness [Unknown]
  - Injection site swelling [Recovered/Resolved]
  - Hunger [Recovered/Resolved]
  - Nausea [Unknown]
  - Pain [Unknown]
  - Pancreatic enzymes increased [Unknown]
  - Hunger [Unknown]
  - Malaise [Recovered/Resolved]

NARRATIVE: CASE EVENT DATE: 2008
